FAERS Safety Report 9310498 (Version 1)
Quarter: 2013Q2

REPORT INFORMATION
  Report Type: Spontaneous
  Country: US (occurrence: US)
  Receive Date: 20130527
  Receipt Date: 20130527
  Transmission Date: 20140414
  Serious: No
  Sender: FDA-Public Use
  Company Number: US-PFIZER INC-2013160801

PATIENT
  Age: 42 Year
  Sex: Female
  Weight: 81.63 kg

DRUGS (2)
  1. LYRICA [Suspect]
     Indication: NERVE COMPRESSION
     Dosage: 75 MG, 1X/DAY
     Dates: start: 20130503, end: 201305
  2. COUMADIN [Concomitant]
     Indication: THROMBOSIS
     Dosage: 7 MG, 1X/DAY
     Dates: start: 201205

REACTIONS (1)
  - Menstruation delayed [Recovered/Resolved]
